FAERS Safety Report 11309360 (Version 2)
Quarter: 2015Q4

REPORT INFORMATION
  Report Type: Report from Study
  Country: US (occurrence: US)
  Receive Date: 20150724
  Receipt Date: 20151212
  Transmission Date: 20160304
  Serious: Yes (Other)
  Sender: FDA-Public Use
  Company Number: US-ASTRAZENECA-2015SE22728

PATIENT
  Sex: Female

DRUGS (2)
  1. OLAPARIB [Suspect]
     Active Substance: OLAPARIB
     Indication: OVARIAN CANCER
     Dosage: TAKING 9 INSTEAD OF 8.
     Route: 048
  2. BENADRYL [Concomitant]
     Active Substance: DIPHENHYDRAMINE HYDROCHLORIDE
     Indication: PRURITUS

REACTIONS (11)
  - Decreased appetite [Unknown]
  - Epistaxis [Recovered/Resolved]
  - Gingival pain [Unknown]
  - Sneezing [Unknown]
  - Nausea [Unknown]
  - Fatigue [Unknown]
  - Haemoglobin decreased [Recovering/Resolving]
  - Abdominal pain upper [Unknown]
  - Pruritus [Unknown]
  - Pruritus generalised [Unknown]
  - Incorrect dose administered [Unknown]
